FAERS Safety Report 9104873 (Version 7)
Quarter: 2013Q2

REPORT INFORMATION
  Report Type: Report from Study
  Country: CA (occurrence: CA)
  Receive Date: 20130220
  Receipt Date: 20130524
  Transmission Date: 20140414
  Serious: Yes (Other)
  Sender: FDA-Public Use
  Company Number: CA-ROCHE-1180970

PATIENT
  Age: 61 Year
  Sex: Male
  Weight: 103 kg

DRUGS (4)
  1. AVASTIN [Suspect]
     Indication: GLIOBLASTOMA
     Route: 042
     Dates: start: 20121217
  2. AVASTIN [Suspect]
     Route: 042
     Dates: start: 20130213, end: 20130227
  3. DECADRON [Suspect]
     Indication: PRODUCT USED FOR UNKNOWN INDICATION
     Route: 065
  4. KEPPRA [Concomitant]

REACTIONS (18)
  - Visual acuity reduced [Unknown]
  - Hemiparesis [Not Recovered/Not Resolved]
  - Disease progression [Unknown]
  - General physical health deterioration [Unknown]
  - Haematuria [Unknown]
  - Fatigue [Not Recovered/Not Resolved]
  - Weight increased [Not Recovered/Not Resolved]
  - Dyspnoea [Not Recovered/Not Resolved]
  - Abdominal distension [Not Recovered/Not Resolved]
  - Tongue ulceration [Not Recovered/Not Resolved]
  - Cough [Recovering/Resolving]
  - Lacrimation increased [Unknown]
  - Dysphonia [Not Recovered/Not Resolved]
  - Asthenia [Not Recovered/Not Resolved]
  - Haemorrhage [Unknown]
  - Candida infection [Recovering/Resolving]
  - Back pain [Not Recovered/Not Resolved]
  - Weight decreased [Unknown]
